FAERS Safety Report 6820838-0 (Version None)
Quarter: 2010Q3

REPORT INFORMATION
  Report Type: 
  Country: None (occurrence: None)
  Receive Date: 20100707
  Receipt Date: 20070626
  Transmission Date: 20110219
  Serious: No
  Sender: FDA-Public Use
  Company Number: US-PFIZER INC-2007052894

PATIENT
  Sex: Male
  Weight: 77.11 kg

DRUGS (2)
  1. ZOLOFT [Suspect]
     Indication: ANXIETY
     Dates: start: 20070601
  2. ALBUTEROL [Concomitant]
     Indication: ASTHMA

REACTIONS (2)
  - DRY MOUTH [None]
  - SEXUAL DYSFUNCTION [None]
